FAERS Safety Report 9116112 (Version 2)
Quarter: 2013Q1

REPORT INFORMATION
  Report Type: Spontaneous
  Country: PL (occurrence: PL)
  Receive Date: 20130225
  Receipt Date: 20130305
  Transmission Date: 20140127
  Serious: Yes (Other)
  Sender: FDA-Public Use
  Company Number: PL-PFIZER INC-2013063174

PATIENT
  Sex: Female

DRUGS (2)
  1. DEPO-PROVERA [Suspect]
     Indication: UTERINE HAEMORRHAGE
     Dosage: UNK
     Dates: start: 201302
  2. FEMOSTON 2/10 [Concomitant]
     Indication: HORMONE REPLACEMENT THERAPY

REACTIONS (5)
  - Blood pressure increased [Recovering/Resolving]
  - Heart rate increased [Recovering/Resolving]
  - Dyspnoea [Recovering/Resolving]
  - Malaise [Recovering/Resolving]
  - Drug dispensing error [Unknown]
